FAERS Safety Report 4334585-0 (Version None)
Quarter: 2004Q2

REPORT INFORMATION
  Report Type: 
  Country: None (occurrence: None)
  Receive Date: 20040407
  Receipt Date: 20031224
  Transmission Date: 20050107
  Serious: Yes (Other)
  Sender: FDA-Public Use
  Company Number: 12464715

PATIENT
  Age: 12 Year
  Sex: Female

DRUGS (5)
  1. PARAPLATIN [Suspect]
     Indication: RHABDOMYOSARCOMA
  2. VP-16 [Suspect]
     Indication: RHABDOMYOSARCOMA
  3. MELPHALAN [Suspect]
     Indication: RHABDOMYOSARCOMA
  4. PIRARUBICIN [Suspect]
     Indication: RHABDOMYOSARCOMA
  5. NEUPOGEN [Concomitant]

REACTIONS (5)
  - BODY TEMPERATURE INCREASED [None]
  - DIARRHOEA [None]
  - OSTEOPOROSIS [None]
  - OVARIAN FAILURE [None]
  - VOMITING [None]
